FAERS Safety Report 4859099-0 (Version None)
Quarter: 2005Q4

REPORT INFORMATION
  Report Type: 
  Country: None (occurrence: None)
  Receive Date: 20051219
  Receipt Date: 20050915
  Transmission Date: 20060501
  Serious: No
  Sender: FDA-Public Use
  Company Number: US-GLAXOSMITHKLINE-A0574376A

PATIENT
  Age: 61 Year
  Sex: Female

DRUGS (3)
  1. NICODERM CQ [Suspect]
     Dates: start: 20050727
  2. NICODERM CQ [Suspect]
     Dates: start: 20050727
  3. NICODERM CQ [Suspect]
     Dates: start: 20050727

REACTIONS (5)
  - ANGER [None]
  - APPLICATION SITE ERYTHEMA [None]
  - APPLICATION SITE IRRITATION [None]
  - APPLICATION SITE PRURITUS [None]
  - NICOTINE DEPENDENCE [None]
